FAERS Safety Report 13471759 (Version 1)
Quarter: 2017Q2

REPORT INFORMATION
  Report Type: Spontaneous
  Country: US (occurrence: US)
  Receive Date: 20170423
  Receipt Date: 20170423
  Transmission Date: 20170830
  Serious: No
  Sender: FDA-Public Use
  Company Number: None

PATIENT
  Age: 67 Year
  Sex: Female

DRUGS (1)
  1. CAPECITABINE TAB 500MG [Suspect]
     Active Substance: CAPECITABINE
     Indication: COLON CANCER

REACTIONS (6)
  - Skin hyperpigmentation [None]
  - Neuropathy peripheral [None]
  - Fatigue [None]
  - Asthenia [None]
  - Musculoskeletal stiffness [None]
  - Hypoaesthesia [None]

NARRATIVE: CASE EVENT DATE: 20170422
